FAERS Safety Report 13765526 (Version 3)
Quarter: 2017Q3

REPORT INFORMATION
  Report Type: Spontaneous
  Country: IT (occurrence: IT)
  Receive Date: 20170718
  Receipt Date: 20170807
  Transmission Date: 20171127
  Serious: Yes (Hospitalization, Other)
  Sender: FDA-Public Use
  Company Number: IT-ABBVIE-17P-083-2042632-00

PATIENT
  Age: 42 Year
  Sex: Female

DRUGS (6)
  1. CLOZAPINE. [Interacting]
     Active Substance: CLOZAPINE
     Indication: SCHIZOPHRENIA
     Route: 065
     Dates: start: 2007
  2. VALPROIC ACID. [Suspect]
     Active Substance: VALPROIC ACID
     Indication: SCHIZOPHRENIA
     Route: 065
     Dates: start: 201508
  3. VALPROIC ACID. [Interacting]
     Active Substance: VALPROIC ACID
     Indication: BORDERLINE PERSONALITY DISORDER
  4. CLOZAPINE. [Interacting]
     Active Substance: CLOZAPINE
     Indication: BORDERLINE PERSONALITY DISORDER
  5. SERTRALINE [Interacting]
     Active Substance: SERTRALINE HYDROCHLORIDE
     Indication: SCHIZOPHRENIA
     Route: 065
     Dates: start: 201508
  6. SERTRALINE [Interacting]
     Active Substance: SERTRALINE HYDROCHLORIDE
     Indication: BORDERLINE PERSONALITY DISORDER

REACTIONS (14)
  - Therapeutic response decreased [Recovered/Resolved]
  - Chest pain [Recovered/Resolved]
  - Pyrexia [Recovered/Resolved]
  - Pericardial effusion [Recovered/Resolved]
  - Pleural effusion [Recovered/Resolved]
  - Hypoalbuminaemia [Recovered/Resolved]
  - Neutrophilia [Recovered/Resolved]
  - Pleurisy [Recovered/Resolved]
  - Leukocytosis [Recovered/Resolved]
  - Serositis [Recovered/Resolved]
  - Pericarditis [Recovered/Resolved]
  - Oedema peripheral [Recovered/Resolved]
  - Drug interaction [Recovered/Resolved]
  - Monocytosis [Recovered/Resolved]

NARRATIVE: CASE EVENT DATE: 20160617
